FAERS Safety Report 22828236 (Version 4)
Quarter: 2023Q4

REPORT INFORMATION
  Report Type: Spontaneous
  Country: US (occurrence: US)
  Receive Date: 20230816
  Receipt Date: 20231204
  Transmission Date: 20240109
  Serious: No
  Sender: FDA-Public Use
  Company Number: US-PFIZER INC-PV202300137525

PATIENT
  Age: 73 Year
  Sex: Male

DRUGS (2)
  1. GENOTROPIN [Suspect]
     Active Substance: SOMATROPIN
     Dosage: 0.3 MG, DAILY
     Dates: start: 2021
  2. GENOTROPIN [Suspect]
     Active Substance: SOMATROPIN
     Dosage: 0.4 MG

REACTIONS (5)
  - Drug dose omission by device [Unknown]
  - Device malfunction [Unknown]
  - Device information output issue [Unknown]
  - Device breakage [Unknown]
  - Expired device used [Unknown]
